FAERS Safety Report 13301899 (Version 2)
Quarter: 2017Q1

REPORT INFORMATION
  Report Type: Spontaneous
  Country: JP (occurrence: JP)
  Receive Date: 20170307
  Receipt Date: 20170310
  Transmission Date: 20170428
  Serious: Yes (Hospitalization, Disabling, Other)
  Sender: FDA-Public Use
  Company Number: JP-GLAXOSMITHKLINE-JP2017JPN030869

PATIENT
  Age: 80 Year
  Sex: Male

DRUGS (6)
  1. C-CYSTEN [Concomitant]
     Active Substance: CARBOCYSTEINE
     Dosage: UNK, TID
  2. LOBU [Concomitant]
     Active Substance: LOBUCAVIR
     Dosage: UNK
  3. LOXONIN [Concomitant]
     Active Substance: LOXOPROFEN SODIUM
     Dosage: UNK
  4. RELENZA [Suspect]
     Active Substance: ZANAMIVIR
     Indication: INFLUENZA
     Dosage: UNK
     Route: 055
     Dates: start: 20170204
  5. CLARITH [Concomitant]
     Active Substance: CLARITHROMYCIN
     Dosage: UNK, TID
  6. MUCODYNE [Concomitant]
     Active Substance: CARBOCYSTEINE
     Dosage: UNK

REACTIONS (1)
  - Hypoglycaemic encephalopathy [Unknown]

NARRATIVE: CASE EVENT DATE: 20170207
